FAERS Safety Report 21345600 (Version 38)
Quarter: 2025Q1

REPORT INFORMATION
  Report Type: Report from Study
  Country: US (occurrence: US)
  Receive Date: 20220916
  Receipt Date: 20250326
  Transmission Date: 20250408
  Serious: Yes (Other)
  Sender: TAKEDA
  Company Number: US-TAKEDA-US202016184

PATIENT
  Age: 47 Year
  Sex: Female

DRUGS (24)
  1. LANADELUMAB [Suspect]
     Active Substance: LANADELUMAB
     Indication: Hereditary angioedema
  2. LANADELUMAB [Suspect]
     Active Substance: LANADELUMAB
     Indication: Female reproductive tract disorder
  3. LANADELUMAB [Suspect]
     Active Substance: LANADELUMAB
     Indication: Menstrual disorder
     Dosage: 300 MILLIGRAM, Q2WEEKS
     Dates: start: 20181116
  4. LANADELUMAB [Suspect]
     Active Substance: LANADELUMAB
     Indication: Anaemia
     Dosage: 300 MILLIGRAM, Q2WEEKS
     Dates: start: 20181117
  5. LANADELUMAB [Suspect]
     Active Substance: LANADELUMAB
     Indication: Immune system disorder
  6. LANADELUMAB [Suspect]
     Active Substance: LANADELUMAB
     Dosage: 300 MILLIGRAM, Q2WEEKS
     Dates: start: 201811
  7. LANADELUMAB [Suspect]
     Active Substance: LANADELUMAB
  8. LANADELUMAB [Suspect]
     Active Substance: LANADELUMAB
     Dosage: 300 MILLIGRAM, Q2WEEKS
     Dates: start: 201909
  9. LANADELUMAB [Suspect]
     Active Substance: LANADELUMAB
     Dosage: 300 MILLIGRAM, Q2WEEKS
     Dates: start: 20191016
  10. LANADELUMAB [Suspect]
     Active Substance: LANADELUMAB
     Dosage: 300 MILLIGRAM, Q2WEEKS
     Dates: start: 20200206
  11. LANADELUMAB [Suspect]
     Active Substance: LANADELUMAB
     Dosage: 2 MILLILITER, Q2WEEKS
     Dates: start: 20200207
  12. LANADELUMAB [Suspect]
     Active Substance: LANADELUMAB
  13. LANADELUMAB [Suspect]
     Active Substance: LANADELUMAB
     Dosage: 300 MILLIGRAM, Q2WEEKS
     Dates: start: 202006
  14. LANADELUMAB [Suspect]
     Active Substance: LANADELUMAB
  15. LANADELUMAB [Suspect]
     Active Substance: LANADELUMAB
     Dosage: 300 MILLIGRAM, Q2WEEKS
     Dates: start: 20210908
  16. LANADELUMAB [Suspect]
     Active Substance: LANADELUMAB
  17. LANADELUMAB [Suspect]
     Active Substance: LANADELUMAB
     Dosage: 300 MILLIGRAM, Q2WEEKS
     Dates: start: 20220915
  18. LANADELUMAB [Suspect]
     Active Substance: LANADELUMAB
     Dosage: 300 MILLIGRAM, Q2WEEKS
     Dates: start: 202209
  19. KALBITOR [Suspect]
     Active Substance: ECALLANTIDE
     Indication: Hereditary angioedema
  20. KALBITOR [Suspect]
     Active Substance: ECALLANTIDE
     Indication: Immune system disorder
  21. KALBITOR [Suspect]
     Active Substance: ECALLANTIDE
     Indication: Menstrual disorder
  22. KALBITOR [Suspect]
     Active Substance: ECALLANTIDE
     Indication: Anaemia
  23. KALBITOR [Suspect]
     Active Substance: ECALLANTIDE
     Indication: Female reproductive tract disorder
  24. KALBITOR [Suspect]
     Active Substance: ECALLANTIDE

REACTIONS (4)
  - Nephrolithiasis [Unknown]
  - Inappropriate schedule of product administration [Unknown]
  - Hereditary angioedema [Recovered/Resolved]
  - Off label use [Unknown]

NARRATIVE: CASE EVENT DATE: 20220421
